FAERS Safety Report 4379086-9 (Version None)
Quarter: 2004Q2

REPORT INFORMATION
  Report Type: 
  Country: None (occurrence: None)
  Receive Date: 20040610
  Receipt Date: 20040528
  Transmission Date: 20050107
  Serious: Yes (Other)
  Sender: FDA-Public Use
  Company Number: 2004036483

PATIENT
  Sex: Female

DRUGS (1)
  1. NEURONTIN [Suspect]
     Indication: ILL-DEFINED DISORDER

REACTIONS (3)
  - ARACHNOIDITIS [None]
  - CHEMICAL POISONING [None]
  - CONDITION AGGRAVATED [None]
